FAERS Safety Report 12801340 (Version 6)
Quarter: 2020Q3

REPORT INFORMATION
  Report Type: Report from Study
  Country: FR (occurrence: FR)
  Receive Date: 20161003
  Receipt Date: 20181012
  Transmission Date: 20201104
  Serious: Yes (Hospitalization)
  Sender: FDA-Public Use
  Company Number: FR-ROCHE-1837251

PATIENT
  Age: 83 Year
  Sex: Female
  Weight: 73 kg

DRUGS (20)
  1. DOLIPRANE [Concomitant]
     Active Substance: ACETAMINOPHEN
     Indication: ARTHRALGIA
     Route: 048
     Dates: start: 20160917, end: 20160917
  2. RED BLOOD CELLS [Concomitant]
     Active Substance: HUMAN RED BLOOD CELL
     Route: 042
     Dates: start: 20160919, end: 20160919
  3. PLATELETS [Concomitant]
     Active Substance: HUMAN PLATELET, ALLOGENIC
     Indication: THROMBOCYTOPENIA
     Route: 042
     Dates: start: 20160921, end: 20160921
  4. KALEORID [Concomitant]
     Active Substance: POTASSIUM CHLORIDE
     Route: 048
     Dates: start: 20160922, end: 20160922
  5. NEFOPAM [Concomitant]
     Active Substance: NEFOPAM
     Indication: HEADACHE
     Route: 042
     Dates: start: 20160918, end: 20160918
  6. ALLOPURINOL. [Concomitant]
     Active Substance: ALLOPURINOL
     Indication: HYPERURICAEMIA
     Route: 048
     Dates: start: 20160908
  7. ONDANSETRON [Concomitant]
     Active Substance: ONDANSETRON
     Route: 042
     Dates: start: 20160922, end: 20160922
  8. NEFOPAM [Concomitant]
     Active Substance: NEFOPAM
     Indication: EAR PAIN
     Route: 042
     Dates: start: 20160919, end: 20160921
  9. TIORFAN [Concomitant]
     Active Substance: RACECADOTRIL
     Indication: DIARRHOEA
     Route: 048
     Dates: start: 20160920, end: 20160920
  10. RED BLOOD CELLS [Concomitant]
     Active Substance: HUMAN RED BLOOD CELL
     Indication: ANAEMIA
     Route: 042
     Dates: start: 20160915, end: 20160915
  11. TOPALGIC (FRANCE) [Concomitant]
     Active Substance: TRAMADOL HYDROCHLORIDE
     Indication: HEADACHE
     Route: 048
     Dates: start: 20160919, end: 20160920
  12. TOPALGIC (FRANCE) [Concomitant]
     Active Substance: TRAMADOL HYDROCHLORIDE
     Indication: EAR PAIN
  13. VENETOCLAX. [Suspect]
     Active Substance: VENETOCLAX
     Indication: ACUTE MYELOID LEUKAEMIA
     Dosage: DATE OF THE MOST RECENT DOSE PRIOR TO EVENT ONSET: 25/SEP/2016 400 MG, AS PER PROTOCOL ALL DAYS OF T
     Route: 048
     Dates: start: 20160915
  14. TIORFAN [Concomitant]
     Active Substance: RACECADOTRIL
     Route: 048
     Dates: start: 20160922, end: 20160922
  15. KALEORID [Concomitant]
     Active Substance: POTASSIUM CHLORIDE
     Route: 048
     Dates: start: 20160921, end: 20160921
  16. LEVOTHYROX [Concomitant]
     Active Substance: LEVOTHYROXINE
     Indication: HYPOTHYROIDISM
     Route: 048
  17. KALEORID [Concomitant]
     Active Substance: POTASSIUM CHLORIDE
     Indication: HYPOKALAEMIA
     Route: 048
     Dates: start: 20160917, end: 20160917
  18. IDASANUTLIN. [Suspect]
     Active Substance: IDASANUTLIN
     Indication: ACUTE MYELOID LEUKAEMIA
     Dosage: DATE OF THE MOST RECENT DOSE PRIOR TO EVENT ONSET: 19/SEP/2016, AS PER PROTOCOL ON DAYS 1?5 ON A 28
     Route: 048
     Dates: start: 20160915
  19. ONDANSETRON [Concomitant]
     Active Substance: ONDANSETRON
     Indication: NAUSEA
     Route: 042
     Dates: start: 20160915, end: 20160921
  20. LOPERAMIDE [Concomitant]
     Active Substance: LOPERAMIDE
     Indication: DIARRHOEA
     Route: 048
     Dates: start: 20160915, end: 20160915

REACTIONS (1)
  - Febrile neutropenia [Not Recovered/Not Resolved]

NARRATIVE: CASE EVENT DATE: 20160926
